FAERS Safety Report 8634458 (Version 2)
Quarter: 2013Q2

REPORT INFORMATION
  Report Type: Report from Study
  Country: BR (occurrence: BR)
  Receive Date: 20120626
  Receipt Date: 20130515
  Transmission Date: 20140414
  Serious: Yes (Death, Hospitalization, Other)
  Sender: FDA-Public Use
  Company Number: BR-BAYER-2012-061463

PATIENT
  Sex: Male
  Weight: 63.95 kg

DRUGS (9)
  1. NEXAVAR [Suspect]
     Indication: HEPATIC CANCER
     Dosage: 400 MG, BID
     Route: 048
     Dates: start: 2008, end: 2008
  2. NEXAVAR [Suspect]
     Indication: HEPATIC CANCER
     Dosage: 200 MG, BID
     Route: 048
     Dates: start: 2008, end: 2010
  3. NEXAVAR [Suspect]
     Indication: HEPATIC CANCER
     Dosage: 1 DF, BID
     Route: 048
     Dates: start: 20120409, end: 201205
  4. NEXAVAR [Suspect]
     Indication: HEPATIC CANCER
     Dosage: 400 MG, BID
     Dates: start: 201204
  5. NEXAVAR [Suspect]
     Indication: HEPATIC CANCER
     Dosage: 2 DF, BID
     Route: 048
     Dates: start: 201205
  6. TACROLIMUS [Concomitant]
     Indication: LIVER TRANSPLANT
     Dosage: 1 DF, QD
     Route: 048
     Dates: start: 20101127
  7. TACROLIMUS [Concomitant]
     Indication: LIVER TRANSPLANT
  8. AZATHIOPRINE [Concomitant]
     Indication: LIVER TRANSPLANT
     Dosage: 1 DF, QD
     Route: 048
     Dates: start: 20101127
  9. SIROLIMUS [Concomitant]
     Indication: RENAL DISORDER
     Dosage: 0.5 MG, BID
     Route: 048
     Dates: start: 201204

REACTIONS (8)
  - Hepatic cancer [Fatal]
  - Hospitalisation [None]
  - Dysentery [Not Recovered/Not Resolved]
  - Weight decreased [Not Recovered/Not Resolved]
  - Palmar-plantar erythrodysaesthesia syndrome [Recovered/Resolved]
  - Alopecia [Recovered/Resolved]
  - Pruritus [Recovered/Resolved]
  - Decreased appetite [Not Recovered/Not Resolved]
